FAERS Safety Report 23726648 (Version 1)
Quarter: 2024Q2

REPORT INFORMATION
  Report Type: Spontaneous
  Country: ES (occurrence: ES)
  Receive Date: 20240410
  Receipt Date: 20240410
  Transmission Date: 20240716
  Serious: Yes (Other)
  Sender: FDA-Public Use
  Company Number: None

PATIENT
  Age: 29 Year
  Sex: Female
  Weight: 58 kg

DRUGS (3)
  1. EMTRICITABINE\TENOFOVIR [Suspect]
     Active Substance: EMTRICITABINE\TENOFOVIR
     Indication: Prophylaxis against HIV infection
     Dosage: 0-1-0, DISOPROXIL TEVA 200 MG/245 MG EFG FILM-COATED TABLETS, 30 TABLETS (UNIT DOSES) (BLISTER OP...
     Route: 048
     Dates: start: 20230601, end: 20230627
  2. ISENTRESS [Suspect]
     Active Substance: RALTEGRAVIR POTASSIUM
     Indication: Prophylaxis against HIV infection
     Dosage: 1-0-1, 400 MG FILM-COATED TABLETS, 60 TABLETS
     Route: 048
     Dates: start: 20230601, end: 20230627
  3. TOPAMAX [Concomitant]
     Active Substance: TOPIRAMATE
     Indication: Cluster headache
     Dosage: 1-0-3, 25 MG FILM-COATED TABLETS, 60 TABLETS
     Route: 048
     Dates: start: 20230114

REACTIONS (7)
  - Blindness transient [Recovered/Resolved]
  - Skin candida [Not Recovered/Not Resolved]
  - Heavy menstrual bleeding [Recovered/Resolved]
  - Constipation [Recovered/Resolved]
  - Acne [Recovering/Resolving]
  - Androgenetic alopecia [Recovering/Resolving]
  - Weight increased [Recovered/Resolved]

NARRATIVE: CASE EVENT DATE: 20230602
